FAERS Safety Report 11123521 (Version 1)
Quarter: 2015Q2

REPORT INFORMATION
  Report Type: Not Available
  Country: CN (occurrence: CN)
  Receive Date: 20150519
  Receipt Date: 20150519
  Transmission Date: 20150821
  Serious: Yes (Death)
  Sender: FDA-Public Use
  Company Number: CN-MUNDIPHARMA DS AND PHARMACOVIGILANCE-GBR-2015-0027946

PATIENT
  Age: 80 Year
  Sex: Male

DRUGS (1)
  1. MORPHINE SULFATE PR TABLET [Suspect]
     Active Substance: MORPHINE SULFATE
     Indication: PAIN MANAGEMENT
     Dosage: 30 MG, BID
     Route: 048
     Dates: start: 20140710, end: 20140812

REACTIONS (4)
  - Gastrointestinal disorder [Not Recovered/Not Resolved]
  - Neoplasm malignant [Fatal]
  - Constipation [Not Recovered/Not Resolved]
  - Nausea [Not Recovered/Not Resolved]

NARRATIVE: CASE EVENT DATE: 20140802
